FAERS Safety Report 10893321 (Version 4)
Quarter: 2016Q4

REPORT INFORMATION
  Report Type: Report from Study
  Country: US (occurrence: US)
  Receive Date: 20150306
  Receipt Date: 20161115
  Transmission Date: 20170206
  Serious: Yes (Hospitalization)
  Sender: FDA-Public Use
  Company Number: US-ACTELION-A-US2015-113951

PATIENT
  Age: 67 Year
  Sex: Female

DRUGS (3)
  1. REVATIO [Concomitant]
     Active Substance: SILDENAFIL CITRATE
  2. TYVASO [Concomitant]
     Active Substance: TREPROSTINIL
  3. TRACLEER [Suspect]
     Active Substance: BOSENTAN
     Indication: PULMONARY ARTERIAL HYPERTENSION
     Dosage: 125 MG, UNK
     Route: 048
     Dates: start: 20100930

REACTIONS (13)
  - Pneumonia [Unknown]
  - Tachycardia [Unknown]
  - Incontinence [Unknown]
  - Fluid retention [Unknown]
  - Lung infection [Unknown]
  - Dyspnoea [Unknown]
  - Traumatic lung injury [Unknown]
  - Drug dose omission [Unknown]
  - Cardiac failure congestive [Unknown]
  - Bronchitis [Unknown]
  - Chronic obstructive pulmonary disease [Unknown]
  - Fall [Unknown]
  - Pulmonary arterial hypertension [Unknown]
